FAERS Safety Report 6994966-3 (Version None)
Quarter: 2010Q3

REPORT INFORMATION
  Report Type: 
  Country: None (occurrence: None)
  Receive Date: 20100915
  Receipt Date: 20100908
  Transmission Date: 20110219
  Serious: Yes (Life-Threatening, Other)
  Sender: FDA-Public Use
  Company Number: DSU-2010-03646

PATIENT
  Age: 86 Year
  Sex: Female
  Weight: 62.551 kg

DRUGS (9)
  1. BENICAR [Suspect]
     Indication: HYPERTENSION
     Dosage: 40 MG (40  MG,QD), PER ORAL
     Route: 048
     Dates: start: 20080416, end: 20100613
  2. ASPIRIN [Concomitant]
  3. VITAMIN D (ERGOCALCIFEROL) (ERGOCALCIFEROL) [Concomitant]
  4. METOPROLOL SUCCINATE [Concomitant]
  5. FISH OIL(FISH OIL) (FISH OIL) [Concomitant]
  6. LOVASTATIN (LOVASTATIN) (LOVASTATIN) [Concomitant]
  7. LEXAPRO (ESCITALOPRAM OXALATE) (ESCITALOPRAM OXALATE) [Concomitant]
  8. TRIAMTERENE/HCTZ (HYDROCHLOROTHIAZIDE, TRIAMTERENE)(HYDROCHLOROTHIAZID [Concomitant]
  9. METFORMIN HCL [Concomitant]

REACTIONS (1)
  - ANGIOEDEMA [None]
